FAERS Safety Report 16148493 (Version 8)
Quarter: 2021Q3

REPORT INFORMATION
  Report Type: Spontaneous
  Country: GB (occurrence: GB)
  Receive Date: 20190402
  Receipt Date: 20210716
  Transmission Date: 20211014
  Serious: Yes (Hospitalization, Other)
  Sender: FDA-Public Use
  Company Number: PHHY2018GB144055

PATIENT
  Age: 62 Year
  Sex: Female

DRUGS (125)
  1. TRASTUZUMAB EMTANSINE [Suspect]
     Active Substance: ADO-TRASTUZUMAB EMTANSINE
     Indication: BREAST CANCER
     Dosage: 420 MG, Q3W
     Route: 042
     Dates: start: 20181019, end: 20190927
  2. CHLORPHENAMINE [Concomitant]
     Active Substance: CHLORPHENIRAMINE MALEATE
     Indication: PRODUCT USED FOR UNKNOWN INDICATION
     Dosage: 10 MG, UNK (TAKEN PRIOR TO STUDY)
     Route: 042
  3. CHLORPHENAMINE [Concomitant]
     Active Substance: CHLORPHENIRAMINE MALEATE
     Dosage: 4 MG, QD
     Route: 048
     Dates: start: 20190909, end: 20190915
  4. METRONIDAZOLE. [Concomitant]
     Active Substance: METRONIDAZOLE
     Dosage: 400 MG, QD
     Route: 048
     Dates: start: 20190918, end: 20190918
  5. VANCOMYCIN [Concomitant]
     Active Substance: VANCOMYCIN
     Dosage: 500 MG
     Route: 042
     Dates: start: 20181120, end: 20181122
  6. ZOLEDRONIC ACID [Concomitant]
     Active Substance: ZOLEDRONIC ACID
     Indication: METASTASES TO BONE
     Dosage: UNK
     Route: 065
     Dates: start: 20181019
  7. DOXYCYCLINE. [Concomitant]
     Active Substance: DOXYCYCLINE
     Dosage: 100 MG
     Route: 048
     Dates: start: 20181113, end: 20181113
  8. GENTAMYCIN [Concomitant]
     Active Substance: GENTAMICIN
     Dosage: 400 MG
     Route: 042
     Dates: start: 20190528, end: 20190528
  9. SODIUM CHLORIDE. [Concomitant]
     Active Substance: SODIUM CHLORIDE
     Dosage: 500 ML
     Route: 042
     Dates: start: 20181123, end: 20181123
  10. SODIUM CHLORIDE. [Concomitant]
     Active Substance: SODIUM CHLORIDE
     Dosage: 500 ML
     Route: 042
     Dates: start: 20181122, end: 20181123
  11. FEMARA [Suspect]
     Active Substance: LETROZOLE
     Indication: BREAST CANCER
     Dosage: 2.5 MG, QD
     Route: 048
     Dates: start: 20180119, end: 20180126
  12. FEMARA [Suspect]
     Active Substance: LETROZOLE
     Dosage: 2.5 MG, QD
     Route: 048
     Dates: start: 20180525, end: 20181011
  13. RANITIDINE. [Concomitant]
     Active Substance: RANITIDINE
     Dosage: TAKEN PRIOR TO STUDY
     Route: 042
     Dates: start: 20180202
  14. FLUCONAZOLE. [Concomitant]
     Active Substance: FLUCONAZOLE
     Dosage: 10 MG (AS NEEDED)
     Route: 048
     Dates: start: 201910
  15. BENDROFLUMETHIAZIDE [Concomitant]
     Active Substance: BENDROFLUMETHIAZIDE
     Indication: PRODUCT USED FOR UNKNOWN INDICATION
     Dosage: 2.5 MG, QD
     Route: 048
     Dates: start: 20030114
  16. ZEROBASE [Concomitant]
     Active Substance: MINERAL OIL\PARAFFIN
     Indication: DRY SKIN
     Dosage: UNK
     Route: 061
  17. SILVER NITRATE. [Concomitant]
     Active Substance: SILVER NITRATE
     Dosage: UNK
     Route: 061
     Dates: start: 20190730, end: 20190730
  18. HEPARIN SODIUM. [Concomitant]
     Active Substance: HEPARIN SODIUM
     Indication: PROPHYLAXIS
     Dosage: 5 ML
     Route: 042
     Dates: start: 20190502, end: 20191106
  19. FEXOFENADINE [Concomitant]
     Active Substance: FEXOFENADINE HYDROCHLORIDE
     Indication: PRURITUS
     Dosage: 180 MG, QD
     Route: 048
     Dates: start: 20190403, end: 20190403
  20. ADCAL D3 [Concomitant]
     Active Substance: CALCIUM CARBONATE\CHOLECALCIFEROL
     Indication: PRODUCT USED FOR UNKNOWN INDICATION
     Dosage: 4 DF, QD
     Route: 048
     Dates: start: 20140127
  21. FERROUS FUMARATE [Concomitant]
     Active Substance: FERROUS FUMARATE
     Indication: PRODUCT USED FOR UNKNOWN INDICATION
     Dosage: 210 MG, QD (0.33 DAY)
     Route: 048
     Dates: start: 20190730
  22. SUGAMMADEX [Concomitant]
     Active Substance: SUGAMMADEX
     Indication: PRODUCT USED FOR UNKNOWN INDICATION
     Dosage: 200 MG, QD
     Route: 042
     Dates: start: 20181220, end: 20181220
  23. GENTAMYCIN [Concomitant]
     Active Substance: GENTAMICIN
     Indication: SEPSIS
     Dosage: 400 MG
     Route: 011
     Dates: start: 20190911, end: 20190911
  24. METOCLOPRAMIDE. [Concomitant]
     Active Substance: METOCLOPRAMIDE
     Indication: PRODUCT USED FOR UNKNOWN INDICATION
     Route: 048
     Dates: start: 20190909, end: 20190909
  25. IRON [Concomitant]
     Active Substance: IRON
     Indication: PRODUCT USED FOR UNKNOWN INDICATION
     Dosage: 210 MG
     Route: 048
     Dates: start: 20190730
  26. FOLIC ACID. [Concomitant]
     Active Substance: FOLIC ACID
     Indication: PRODUCT USED FOR UNKNOWN INDICATION
     Dosage: 5 MG, QD
     Route: 048
     Dates: start: 20030207
  27. TERBUTALINE [Concomitant]
     Active Substance: TERBUTALINE
     Indication: PRODUCT USED FOR UNKNOWN INDICATION
     Dosage: 800 UG, QD
     Route: 055
     Dates: start: 20030108
  28. OMEPRAZOLE. [Concomitant]
     Active Substance: OMEPRAZOLE
     Dosage: 40 MG
     Route: 048
     Dates: start: 20191107, end: 20200205
  29. RANITIDINE. [Concomitant]
     Active Substance: RANITIDINE
     Dosage: 300 MG, QD
     Route: 048
     Dates: start: 20200212
  30. HYDROXOCOBALAMIN [Concomitant]
     Active Substance: HYDROXOCOBALAMIN
     Indication: PRODUCT USED FOR UNKNOWN INDICATION
     Dosage: 1 MG/1 ML
     Route: 030
     Dates: start: 20020115
  31. METRONIDAZOLE. [Concomitant]
     Active Substance: METRONIDAZOLE
     Dosage: 500 MG, QD
     Route: 048
     Dates: start: 20190911, end: 20190915
  32. VANCOMYCIN [Concomitant]
     Active Substance: VANCOMYCIN
     Dosage: 500 MG
     Route: 042
     Dates: start: 20190527
  33. DOXYCYCLINE. [Concomitant]
     Active Substance: DOXYCYCLINE
     Dosage: 100 MG, QD
     Route: 048
     Dates: start: 20181114, end: 20181119
  34. ONDANSETRON [Concomitant]
     Active Substance: ONDANSETRON
     Dosage: 4 MG, QD
     Route: 048
     Dates: start: 20200214, end: 20200214
  35. EUMOVATE [Concomitant]
     Active Substance: CLOBETASONE BUTYRATE
     Indication: PRURITUS
     Dosage: UNK
     Route: 065
  36. SILVER NITRATE. [Concomitant]
     Active Substance: SILVER NITRATE
     Indication: GASTROINTESTINAL HAEMORRHAGE
     Dosage: UNK
     Route: 061
     Dates: start: 20190510, end: 20190510
  37. SILVER NITRATE. [Concomitant]
     Active Substance: SILVER NITRATE
     Dosage: UNK
     Route: 061
     Dates: start: 20190522, end: 20190522
  38. GLUCOSE [Concomitant]
     Active Substance: DEXTROSE
     Indication: GASTROINTESTINAL HAEMORRHAGE
     Dosage: 0.18NA CL 4% GLUCOSE
     Route: 042
     Dates: start: 20190523, end: 20190523
  39. FEXOFENADINE [Concomitant]
     Active Substance: FEXOFENADINE HYDROCHLORIDE
     Indication: SKIN ABRASION
     Dosage: UNK
     Route: 065
  40. ADCAL D3 [Concomitant]
     Active Substance: CALCIUM CARBONATE\CHOLECALCIFEROL
     Dosage: 2 DF
     Route: 048
     Dates: start: 20140127
  41. AMOXICILLIN. [Concomitant]
     Active Substance: AMOXICILLIN
     Indication: PRODUCT USED FOR UNKNOWN INDICATION
     Dosage: 1 G, BID (0.5 DAY)
     Route: 042
     Dates: start: 20190911, end: 20190915
  42. CARMELLOSE [Concomitant]
     Active Substance: CARBOXYMETHYLCELLULOSE
     Indication: PRODUCT USED FOR UNKNOWN INDICATION
     Dosage: UNK
     Route: 061
     Dates: start: 20181220, end: 20190116
  43. DEXAMETHASONE. [Concomitant]
     Active Substance: DEXAMETHASONE
     Indication: PRODUCT USED FOR UNKNOWN INDICATION
     Dosage: 8 MG, UNK (TAKEN PRIOR TO STUDY)
     Route: 042
  44. COCODAMOL [Concomitant]
     Active Substance: ACETAMINOPHEN\CODEINE PHOSPHATE
     Dosage: 1 DF
     Route: 065
     Dates: start: 20180302
  45. PENTASA [Concomitant]
     Active Substance: MESALAMINE
     Indication: CROHN^S DISEASE
     Dosage: 1 DF, QD (SACHETS)
     Route: 048
     Dates: start: 20131217, end: 20180730
  46. BENZYDAMINE [Concomitant]
     Active Substance: BENZYDAMINE
     Indication: PRODUCT USED FOR UNKNOWN INDICATION
     Dosage: 5 ML (MOUTHWASH)
     Route: 065
     Dates: start: 20180414
  47. METRONIDAZOLE. [Concomitant]
     Active Substance: METRONIDAZOLE
     Dosage: 400 MG, QD
     Route: 048
     Dates: start: 20190916, end: 20190916
  48. METRONIDAZOLE. [Concomitant]
     Active Substance: METRONIDAZOLE
     Dosage: 500 MG, QD
     Route: 042
     Dates: start: 20181119, end: 20181121
  49. METRONIDAZOLE. [Concomitant]
     Active Substance: METRONIDAZOLE
     Dosage: 400 MG, QD
     Route: 048
     Dates: start: 201910, end: 20191009
  50. CYCLIZINE [Concomitant]
     Active Substance: CYCLIZINE
     Indication: PRODUCT USED FOR UNKNOWN INDICATION
     Dosage: 50 MG, UNK
     Route: 048
  51. CYCLIZINE [Concomitant]
     Active Substance: CYCLIZINE
     Dosage: 50 MG
     Route: 048
     Dates: start: 20181102
  52. COLECALCIFEROL [Concomitant]
     Active Substance: CHOLECALCIFEROL
     Dosage: 4 DF, QD,
     Route: 048
     Dates: start: 20140127
  53. COLECALCIFEROL [Concomitant]
     Active Substance: CHOLECALCIFEROL
     Dosage: 2 DF
     Route: 048
     Dates: start: 20180920
  54. COLECALCIFEROL [Concomitant]
     Active Substance: CHOLECALCIFEROL
     Dosage: UNK
     Route: 048
     Dates: start: 20180926
  55. HYDROCORTISONE. [Concomitant]
     Active Substance: HYDROCORTISONE
     Indication: PRODUCT USED FOR UNKNOWN INDICATION
     Dosage: UNK
     Route: 061
     Dates: start: 20180705
  56. TRASTUZUMAB. [Suspect]
     Active Substance: TRASTUZUMAB
     Indication: BREAST CANCER
     Dosage: 600 MG, UNK
     Route: 058
     Dates: start: 20180202, end: 20180827
  57. TERBUTALINE [Concomitant]
     Active Substance: TERBUTALINE
     Dosage: 200 UG
     Route: 055
     Dates: start: 20030108
  58. AMLODIPINE [Concomitant]
     Active Substance: AMLODIPINE BESYLATE
     Indication: PRODUCT USED FOR UNKNOWN INDICATION
     Dosage: 10 MG, QD (TAKEN PRIOR TO STUDY)
     Route: 048
     Dates: start: 20180301
  59. RANITIDINE. [Concomitant]
     Active Substance: RANITIDINE
     Indication: PRODUCT USED FOR UNKNOWN INDICATION
     Dosage: 50 MG, UNK (TAKEN PRIOR TO STUDY)
     Route: 042
  60. RANITIDINE. [Concomitant]
     Active Substance: RANITIDINE
     Dosage: 150 MG, QD
     Route: 065
     Dates: start: 20181123, end: 20181123
  61. COCODAMOL [Concomitant]
     Active Substance: ACETAMINOPHEN\CODEINE PHOSPHATE
     Dosage: 1 DF
     Route: 065
     Dates: start: 20200302
  62. FLUCONAZOLE. [Concomitant]
     Active Substance: FLUCONAZOLE
     Indication: PRODUCT USED FOR UNKNOWN INDICATION
     Dosage: 10 MG (TAKEN PRIOR TO STUDY)
     Route: 048
     Dates: start: 20180202
  63. FLUCONAZOLE. [Concomitant]
     Active Substance: FLUCONAZOLE
     Dosage: 10 MG, QD
     Route: 048
     Dates: start: 20190909, end: 20190909
  64. DOXAZOSIN [Concomitant]
     Active Substance: DOXAZOSIN MESYLATE
     Indication: PRODUCT USED FOR UNKNOWN INDICATION
     Dosage: 2 MG, QD
     Route: 048
     Dates: start: 20040816
  65. METRONIDAZOLE. [Concomitant]
     Active Substance: METRONIDAZOLE
     Dosage: 1500 MG, QD
     Route: 042
     Dates: start: 20190526
  66. VANCOMYCIN [Concomitant]
     Active Substance: VANCOMYCIN
     Dosage: 1000 MG, QD
     Route: 042
     Dates: start: 20190527
  67. TEICOPLANIN [Concomitant]
     Active Substance: TEICOPLANIN
     Indication: PRODUCT USED FOR UNKNOWN INDICATION
     Dosage: 400 MG, UNK
     Route: 065
     Dates: start: 20181220, end: 20181224
  68. SANDO K [Concomitant]
     Indication: PRODUCT USED FOR UNKNOWN INDICATION
     Dosage: UNK
     Route: 065
  69. ONDANSETRON [Concomitant]
     Active Substance: ONDANSETRON
     Dosage: 4 MG, QD
     Route: 048
     Dates: start: 20190920, end: 20190920
  70. ONDANSETRON [Concomitant]
     Active Substance: ONDANSETRON
     Dosage: 4 MG (AS NEEDED)
     Route: 048
     Dates: start: 20181216, end: 20190107
  71. ONDANSETRON [Concomitant]
     Active Substance: ONDANSETRON
     Dosage: 4 MG (AS NEEDED)
     Route: 042
     Dates: start: 20181119, end: 20181122
  72. DERMOLATE [Concomitant]
     Indication: PRODUCT USED FOR UNKNOWN INDICATION
     Dosage: AS NEEDED
     Route: 061
     Dates: start: 20180605
  73. CO?AMOXICLAV [Concomitant]
     Active Substance: AMOXICILLIN\CLAVULANATE POTASSIUM
     Indication: PRODUCT USED FOR UNKNOWN INDICATION
     Dosage: 625 MG, QD
     Route: 048
     Dates: start: 20190915, end: 20190916
  74. OMEPRAZOLE. [Concomitant]
     Active Substance: OMEPRAZOLE
     Indication: PRODUCT USED FOR UNKNOWN INDICATION
     Dosage: 20 MG, QD
     Route: 048
     Dates: start: 20091014
  75. PENTASA [Concomitant]
     Active Substance: MESALAMINE
     Dosage: 4 G, QD
     Route: 048
     Dates: start: 20180730
  76. DOXAZOSIN [Concomitant]
     Active Substance: DOXAZOSIN MESYLATE
     Dosage: 2 MG, QD
     Route: 048
     Dates: start: 20190908
  77. CETRIZINE [Concomitant]
     Active Substance: CETIRIZINE HYDROCHLORIDE
     Indication: PRODUCT USED FOR UNKNOWN INDICATION
     Dosage: 10 UG
     Route: 048
     Dates: start: 20080430
  78. METRONIDAZOLE. [Concomitant]
     Active Substance: METRONIDAZOLE
     Indication: SEPSIS
     Dosage: 1500 MG, QD
     Route: 042
     Dates: start: 20181119, end: 20181124
  79. METRONIDAZOLE. [Concomitant]
     Active Substance: METRONIDAZOLE
     Dosage: 400 MG, UNK
     Route: 065
     Dates: start: 20181122, end: 20181123
  80. TRANEXAMIC ACID. [Concomitant]
     Active Substance: TRANEXAMIC ACID
     Indication: PRODUCT USED FOR UNKNOWN INDICATION
     Dosage: UNK
     Route: 065
  81. AQUACEL [Concomitant]
     Active Substance: CARBOXYMETHYLCELLULOSE SODIUM
     Indication: PRODUCT USED FOR UNKNOWN INDICATION
     Dosage: UNK
     Route: 065
  82. AQUACEL [Concomitant]
     Active Substance: CARBOXYMETHYLCELLULOSE SODIUM
     Dosage: UNK
     Route: 061
     Dates: start: 20181220, end: 20190116
  83. COLECALCIFEROL [Concomitant]
     Active Substance: CHOLECALCIFEROL
     Indication: PRODUCT USED FOR UNKNOWN INDICATION
     Dosage: 4 DF, BID (0.5 DAY)
     Route: 048
     Dates: start: 20180920
  84. SILVER NITRATE. [Concomitant]
     Active Substance: SILVER NITRATE
     Dosage: UNK (1 UNIT)
     Route: 061
     Dates: start: 20190527, end: 20190527
  85. RED BLOOD CELLS [Concomitant]
     Active Substance: HUMAN RED BLOOD CELL
     Indication: GASTROINTESTINAL HAEMORRHAGE
     Dosage: UNK
     Route: 042
     Dates: start: 20190511, end: 20190511
  86. CIPROFLOXACIN. [Concomitant]
     Active Substance: CIPROFLOXACIN
     Indication: PRODUCT USED FOR UNKNOWN INDICATION
     Dosage: 500 MG, BID (0.5 DAY)
     Route: 048
     Dates: start: 201910, end: 20191009
  87. CLARITHROMYCIN. [Concomitant]
     Active Substance: CLARITHROMYCIN
     Indication: PRODUCT USED FOR UNKNOWN INDICATION
     Dosage: 500 MG, BID (0.5 DAY)
     Route: 048
     Dates: start: 20190717, end: 20190724
  88. DUODERM [Concomitant]
     Indication: PRODUCT USED FOR UNKNOWN INDICATION
     Dosage: UNK
     Route: 061
     Dates: start: 20181220, end: 20190116
  89. METOCLOPRAMIDE. [Concomitant]
     Active Substance: METOCLOPRAMIDE
     Dosage: 10 MG (TAKEN PRIOR TO STUDY)
     Route: 048
     Dates: start: 20180202
  90. TOLNAFTATE. [Concomitant]
     Active Substance: TOLNAFTATE
     Indication: PRODUCT USED FOR UNKNOWN INDICATION
     Dosage: UNK
     Route: 061
     Dates: start: 20181220, end: 20190116
  91. TAXOL [Suspect]
     Active Substance: PACLITAXEL
     Indication: BREAST CANCER
     Dosage: 156 MG, QW
     Route: 042
     Dates: start: 20180202, end: 20180518
  92. QUININE SULPHATE [Concomitant]
     Active Substance: QUININE SULFATE
     Indication: PRODUCT USED FOR UNKNOWN INDICATION
     Dosage: 200 MG, QD
     Route: 048
     Dates: start: 20040219
  93. COCODAMOL [Concomitant]
     Active Substance: ACETAMINOPHEN\CODEINE PHOSPHATE
     Indication: PRODUCT USED FOR UNKNOWN INDICATION
     Dosage: 30/500 MG FORM STRENGTH
     Route: 048
     Dates: start: 20030104, end: 20180225
  94. PIRITON [Concomitant]
     Active Substance: CHLORPHENIRAMINE MALEATE
     Indication: PRODUCT USED FOR UNKNOWN INDICATION
     Dosage: 4 MG
     Route: 048
     Dates: start: 20180125
  95. FLUCONAZOLE. [Concomitant]
     Active Substance: FLUCONAZOLE
     Indication: PRODUCT USED FOR UNKNOWN INDICATION
     Dosage: 100 MG, QD
     Route: 048
     Dates: start: 20180125
  96. CLOTRIMAZOLE. [Concomitant]
     Active Substance: CLOTRIMAZOLE
     Indication: PRODUCT USED FOR UNKNOWN INDICATION
     Dosage: UNK
     Route: 061
     Dates: start: 20180125
  97. ADCAL?D3 [Concomitant]
     Active Substance: CALCIUM CARBONATE\CHOLECALCIFEROL
     Indication: PRODUCT USED FOR UNKNOWN INDICATION
     Dosage: 2 DF, BID
     Route: 048
     Dates: start: 20140127
  98. METRONIDAZOLE. [Concomitant]
     Active Substance: METRONIDAZOLE
     Dosage: 500 MG, QD
     Route: 042
     Dates: start: 20190526
  99. VANCOMYCIN [Concomitant]
     Active Substance: VANCOMYCIN
     Dosage: 2000 MG, UNK
     Route: 042
     Dates: start: 20190526, end: 20190526
  100. VANCOMYCIN [Concomitant]
     Active Substance: VANCOMYCIN
     Dosage: 2000 MG, UNK
     Route: 042
     Dates: start: 20181119, end: 20181119
  101. CHIROCAINE [Concomitant]
     Active Substance: LEVOBUPIVACAINE HYDROCHLORIDE
     Indication: PRODUCT USED FOR UNKNOWN INDICATION
     Dosage: UNK
     Route: 065
  102. ONDANSETRON [Concomitant]
     Active Substance: ONDANSETRON
     Indication: PRODUCT USED FOR UNKNOWN INDICATION
     Dosage: UNK
     Route: 065
  103. EUMOVATE [Concomitant]
     Active Substance: CLOBETASONE BUTYRATE
     Indication: SKIN ABRASION
     Dosage: 2 DF, BID (0.05 DAY)
     Route: 061
     Dates: start: 20190403
  104. NACL [Concomitant]
     Active Substance: SODIUM CHLORIDE
     Indication: PRODUCT USED FOR UNKNOWN INDICATION
     Dosage: 500 ML
     Route: 042
     Dates: start: 20181122, end: 20181123
  105. NACL [Concomitant]
     Active Substance: SODIUM CHLORIDE
     Dosage: 500 ML
     Route: 042
     Dates: start: 20181123, end: 20181123
  106. GENTAMYCIN [Concomitant]
     Active Substance: GENTAMICIN
     Dosage: 400 MG
     Route: 042
     Dates: start: 20181119, end: 20181119
  107. TRIMETHOPRIM. [Concomitant]
     Active Substance: TRIMETHOPRIM
     Indication: PRODUCT USED FOR UNKNOWN INDICATION
     Dosage: 200 MG, BID (0.5 DAY)
     Route: 048
     Dates: start: 20190813, end: 20190815
  108. SALINE [Concomitant]
     Active Substance: SODIUM CHLORIDE
     Indication: GASTROINTESTINAL HAEMORRHAGE
     Dosage: 500 ML
     Route: 042
     Dates: start: 20190522, end: 20190522
  109. COCODAMOL [Concomitant]
     Active Substance: ACETAMINOPHEN\CODEINE PHOSPHATE
     Dosage: 1 DF, UNK (1 UG/LITRE)
     Route: 065
  110. CHLORPHENAMINE [Concomitant]
     Active Substance: CHLORPHENIRAMINE MALEATE
     Dosage: 10 MG (TAKEN PRIOR TO STUDY)
     Route: 042
     Dates: start: 20180202
  111. BENDROFLUMETHIAZIDE [Concomitant]
     Active Substance: BENDROFLUMETHIAZIDE
     Dosage: 2.5 MG, QD
     Route: 048
     Dates: start: 20190908
  112. CHLORHEXIDINE [Concomitant]
     Active Substance: CHLORHEXIDINE
     Indication: PRODUCT USED FOR UNKNOWN INDICATION
     Dosage: AS NEEDED
     Route: 065
     Dates: start: 20181019
  113. TRANEXAMIC ACID. [Concomitant]
     Active Substance: TRANEXAMIC ACID
     Dosage: 1 G (0.33 DAY)
     Route: 048
     Dates: start: 20190804, end: 20190806
  114. VANCOMYCIN [Concomitant]
     Active Substance: VANCOMYCIN
     Indication: SEPSIS
     Dosage: 2000 MG, UNK
     Route: 042
  115. ZOLEDRONIC ACID [Concomitant]
     Active Substance: ZOLEDRONIC ACID
     Dosage: 4 MG, QD
     Route: 042
     Dates: start: 20181019
  116. DOXYCYCLINE. [Concomitant]
     Active Substance: DOXYCYCLINE
     Indication: PRODUCT USED FOR UNKNOWN INDICATION
     Dosage: 200 MG, BID (0.5 DAY)
     Route: 048
     Dates: start: 20181113, end: 20181113
  117. SILVER NITRATE. [Concomitant]
     Active Substance: SILVER NITRATE
     Indication: HAEMORRHAGE
     Dosage: 1 UNIT
     Route: 061
     Dates: start: 20180329, end: 20180329
  118. GLUCOSE [Concomitant]
     Active Substance: DEXTROSE
     Dosage: 0.18% NACL 4% GLUCOSE + 20MML KCL
     Route: 042
     Dates: start: 20190525, end: 20190525
  119. RED BLOOD CELLS [Concomitant]
     Active Substance: HUMAN RED BLOOD CELL
     Indication: HAEMORRHAGE
     Dosage: 3 UNIT
     Route: 042
     Dates: start: 20190523, end: 20190524
  120. FEXOFENADINE [Concomitant]
     Active Substance: FEXOFENADINE HYDROCHLORIDE
     Dosage: 180 MG, QD
     Route: 048
     Dates: start: 201910, end: 20191119
  121. GENTAMYCIN [Concomitant]
     Active Substance: GENTAMICIN
     Dosage: 400 MG
     Route: 042
     Dates: start: 20190526, end: 20190526
  122. GENTAMYCIN [Concomitant]
     Active Substance: GENTAMICIN
     Dosage: 400 MG
     Route: 042
     Dates: start: 20190913, end: 20190913
  123. METOCLOPRAMIDE. [Concomitant]
     Active Substance: METOCLOPRAMIDE
     Dosage: 10 MG (AS NEEDED)
     Route: 048
     Dates: start: 201910
  124. SODIUM CHLORIDE. [Concomitant]
     Active Substance: SODIUM CHLORIDE
     Indication: PRODUCT USED FOR UNKNOWN INDICATION
     Dosage: 500 ML
     Route: 042
     Dates: start: 20190522, end: 20190522
  125. CETIRIZINE [Concomitant]
     Active Substance: CETIRIZINE HYDROCHLORIDE
     Indication: PRODUCT USED FOR UNKNOWN INDICATION
     Dosage: 10 UG
     Route: 048
     Dates: start: 20080430

REACTIONS (12)
  - Mucosal inflammation [Recovered/Resolved]
  - Diarrhoea [Recovered/Resolved]
  - Bone pain [Recovered/Resolved]
  - Vomiting [Recovered/Resolved]
  - Arthralgia [Not Recovered/Not Resolved]
  - Oedema peripheral [Recovered/Resolved]
  - Cancer pain [Recovered/Resolved]
  - Oedema [Recovered/Resolved]
  - Pain in extremity [Unknown]
  - Disease progression [Unknown]
  - Wound [Recovered/Resolved]
  - C-reactive protein increased [Recovered/Resolved]

NARRATIVE: CASE EVENT DATE: 20180225
